FAERS Safety Report 6764599-2 (Version None)
Quarter: 2010Q2

REPORT INFORMATION
  Report Type: 
  Country: None (occurrence: None)
  Receive Date: 20100609
  Receipt Date: 20100513
  Transmission Date: 20101027
  Serious: No
  Sender: FDA-Public Use
  Company Number: 2010011648

PATIENT
  Age: 2 Year
  Sex: Female
  Weight: 13.1543 kg

DRUGS (3)
  1. CHILDREN'S ZYRTEC ALLERGY [Suspect]
     Indication: COUGH
     Dosage: 1 TEASPOON EVERY 24 HOURS, ORAL
     Route: 048
  2. CHILDREN'S ZYRTEC ALLERGY [Suspect]
     Indication: SNEEZING
     Dosage: 1 TEASPOON EVERY 24 HOURS, ORAL
     Route: 048
  3. CHILDREN'S ZYRTEC ALLERGY [Suspect]

REACTIONS (2)
  - PRODUCT QUALITY ISSUE [None]
  - SOMNOLENCE [None]
